FAERS Safety Report 12402950 (Version 1)
Quarter: 2016Q2

REPORT INFORMATION
  Report Type: Spontaneous
  Country: FR (occurrence: FR)
  Receive Date: 20160525
  Receipt Date: 20160525
  Transmission Date: 20160815
  Serious: Yes (Death, Life-Threatening, Hospitalization, Other)
  Sender: FDA-Public Use
  Company Number: FR-MDT-ADR-2016-00941

PATIENT
  Age: 49 Year
  Sex: Female

DRUGS (7)
  1. XANAX [Suspect]
     Active Substance: ALPRAZOLAM
     Route: 065
  2. EFFEXOR [Suspect]
     Active Substance: VENLAFAXINE HYDROCHLORIDE
     Route: 065
  3. SERESTA [Suspect]
     Active Substance: OXAZEPAM
     Route: 065
  4. BACLOFEN. [Suspect]
     Active Substance: BACLOFEN
     Route: 065
  5. DEPAKOTE [Suspect]
     Active Substance: DIVALPROEX SODIUM
     Route: 065
  6. TERCIAN [Suspect]
     Active Substance: CYAMEMAZINE
     Route: 065
  7. THERALEN [Suspect]
     Active Substance: TRIMEPRAZINE
     Route: 065

REACTIONS (2)
  - Loss of consciousness [Unknown]
  - Toxicity to various agents [Fatal]
